FAERS Safety Report 15533163 (Version 1)
Quarter: 2018Q4

REPORT INFORMATION
  Report Type: Spontaneous
  Country: DE (occurrence: DE)
  Receive Date: 20181021
  Receipt Date: 20181021
  Transmission Date: 20190205
  Serious: Yes (Hospitalization)
  Sender: FDA-Public Use
  Company Number: DE-JNJFOC-20181016784

PATIENT
  Age: 66 Year
  Sex: Female
  Weight: 64 kg

DRUGS (9)
  1. IBUPROFEN. [Suspect]
     Active Substance: IBUPROFEN
     Route: 048
  2. IBUPROFEN. [Suspect]
     Active Substance: IBUPROFEN
     Indication: PYREXIA
     Route: 048
  3. DOXEPIN [Concomitant]
     Active Substance: DOXEPIN
     Indication: DEPRESSION
     Dosage: 50 MG-0-100 MG-0
     Route: 048
     Dates: start: 2003
  4. CANDESARTAN. [Concomitant]
     Active Substance: CANDESARTAN
     Indication: HYPERTENSION
     Route: 065
  5. PROMETHAZINE [Concomitant]
     Active Substance: PROMETHAZINE\PROMETHAZINE HYDROCHLORIDE
     Indication: DEPRESSION
     Route: 048
     Dates: start: 2003
  6. OLANZAPINE. [Concomitant]
     Active Substance: OLANZAPINE
     Indication: DEPRESSION
     Route: 048
     Dates: start: 2003
  7. LITHIUM. [Interacting]
     Active Substance: LITHIUM
     Indication: DEPRESSION
     Route: 048
     Dates: start: 2003
  8. PRAMIPEXOLE. [Concomitant]
     Active Substance: PRAMIPEXOLE
     Indication: RESTLESS LEGS SYNDROME
     Route: 065
  9. IMIPRAMINE [Concomitant]
     Active Substance: IMIPRAMINE
     Indication: DEPRESSION
     Route: 048
     Dates: start: 2003

REACTIONS (3)
  - Acute kidney injury [Recovered/Resolved]
  - Toxicity to various agents [Recovered/Resolved]
  - Drug interaction [Recovered/Resolved]
